FAERS Safety Report 19323216 (Version 2)
Quarter: 2021Q2

REPORT INFORMATION
  Report Type: Spontaneous
  Country: DE (occurrence: DE)
  Receive Date: 20210528
  Receipt Date: 20210624
  Transmission Date: 20210717
  Serious: Yes (Life-Threatening, Hospitalization)
  Sender: FDA-Public Use
  Company Number: DE-ROCHE-2819673

PATIENT
  Age: 67 Year
  Sex: Female
  Weight: 65 kg

DRUGS (3)
  1. ROACTEMRA [Suspect]
     Active Substance: TOCILIZUMAB
     Indication: RHEUMATOID ARTHRITIS
     Route: 058
     Dates: start: 201910, end: 202010
  2. ROACTEMRA [Suspect]
     Active Substance: TOCILIZUMAB
     Route: 058
     Dates: start: 202011, end: 202104
  3. PREDNISOLONE. [Concomitant]
     Active Substance: PREDNISOLONE
     Indication: RHEUMATOID ARTHRITIS
     Dosage: 10?20 MG PER DAY
     Route: 048
     Dates: start: 2002

REACTIONS (3)
  - Neutropenia [Not Recovered/Not Resolved]
  - Leukopenia [Unknown]
  - Large granular lymphocytosis [Not Recovered/Not Resolved]

NARRATIVE: CASE EVENT DATE: 202002
